FAERS Safety Report 8592000-5 (Version None)
Quarter: 2012Q3

REPORT INFORMATION
  Report Type: 
  Country: None (occurrence: None)
  Receive Date: 20120814
  Receipt Date: 20120809
  Transmission Date: 20120928
  Serious: Yes (Other)
  Sender: FDA-Public Use
  Company Number: CO-PFIZER INC-2012197221

PATIENT
  Age: 66 Year
  Sex: Female

DRUGS (5)
  1. LOVAZA [Concomitant]
     Dosage: UNK
  2. DAFLON [Concomitant]
     Indication: VARICOSE VEIN
     Dosage: UNK
     Route: 048
     Dates: start: 20070101
  3. NORVASC [Suspect]
     Indication: HYPERTENSION
     Dosage: 5 MG EVERY 12 HOURS
     Route: 048
     Dates: start: 20080101
  4. ASPIRIN [Concomitant]
     Indication: VARICOSE VEIN
     Dosage: UNK
     Route: 048
     Dates: start: 19970101
  5. OMEPRAZOLE [Concomitant]
     Indication: GASTRITIS
     Dosage: EVERY 12 HOURS ORAL
     Route: 048
     Dates: start: 20070101

REACTIONS (7)
  - ARTHRALGIA [None]
  - HYPOTHYROIDISM [None]
  - MUSCULOSKELETAL PAIN [None]
  - CHOLELITHIASIS [None]
  - BLOOD TRIGLYCERIDES INCREASED [None]
  - HYPERCHOLESTEROLAEMIA [None]
  - FALL [None]
